FAERS Safety Report 5164484-6 (Version None)
Quarter: 2006Q4

REPORT INFORMATION
  Report Type: 
  Country: None (occurrence: None)
  Receive Date: 20061205
  Receipt Date: 20061116
  Transmission Date: 20070319
  Serious: Yes (Other)
  Sender: FDA-Public Use
  Company Number: US-AMGEN-US201454

PATIENT
  Sex: Female

DRUGS (1)
  1. ENBREL [Suspect]
     Indication: DRUG USE FOR UNKNOWN INDICATION
     Dates: start: 20000201

REACTIONS (2)
  - DEMYELINATION [None]
  - NEUROGENIC BLADDER [None]
